FAERS Safety Report 10328924 (Version 1)
Quarter: 2014Q3

REPORT INFORMATION
  Report Type: Spontaneous
  Country: US (occurrence: None)
  Receive Date: 20140717
  Receipt Date: 20140717
  Transmission Date: 20150326
  Serious: Yes (Other)
  Sender: FDA-Public Use
  Company Number: HA14-267-AE

PATIENT

DRUGS (1)
  1. TRAMADOL HCL [Suspect]
     Active Substance: TRAMADOL HYDROCHLORIDE
     Route: 048

REACTIONS (3)
  - Vertigo [None]
  - Vestibular disorder [None]
  - Ototoxicity [None]
